FAERS Safety Report 7232380-6 (Version None)
Quarter: 2011Q1

REPORT INFORMATION
  Report Type: 
  Country: None (occurrence: None)
  Receive Date: 20110119
  Receipt Date: 20110113
  Transmission Date: 20110831
  Serious: Yes (Other)
  Sender: FDA-Public Use
  Company Number: FR-JNJFOC-20110103507

PATIENT
  Age: 59 Year
  Sex: Female

DRUGS (3)
  1. LEPTICUR [Concomitant]
     Indication: PRODUCT USED FOR UNKNOWN INDICATION
  2. RISPERDAL CONSTA [Suspect]
     Indication: PSYCHOTIC DISORDER
     Route: 030
  3. RISPERDAL [Suspect]
     Indication: PSYCHOTIC DISORDER
     Route: 048

REACTIONS (1)
  - EYE HAEMORRHAGE [None]
